FAERS Safety Report 11742087 (Version 1)
Quarter: 2015Q4

REPORT INFORMATION
  Report Type: Spontaneous
  Country: US (occurrence: US)
  Receive Date: 20151116
  Receipt Date: 20151116
  Transmission Date: 20160304
  Serious: No
  Sender: FDA-Public Use
  Company Number: US-PFIZER INC-2015371941

PATIENT
  Sex: Female

DRUGS (1)
  1. ADVIL [Suspect]
     Active Substance: IBUPROFEN
     Indication: BACK PAIN
     Dosage: UNK, 3X/DAY (TOOK IT FOR MONTH 3 TIMES A DAY)

REACTIONS (5)
  - Limb injury [Unknown]
  - Pain in extremity [Unknown]
  - Muscular weakness [Unknown]
  - Burning sensation [Not Recovered/Not Resolved]
  - Hypoaesthesia [Unknown]
